FAERS Safety Report 15578908 (Version 1)
Quarter: 2018Q4

REPORT INFORMATION
  Report Type: Other
  Country: US (occurrence: US)
  Receive Date: 20181102
  Receipt Date: 20181102
  Transmission Date: 20190205
  Serious: Yes (Hospitalization)
  Sender: FDA-Public Use
  Company Number: US-GENUS_LIFESCIENCES-USA-POI0580201800113

PATIENT
  Age: 62 Year
  Sex: Male

DRUGS (1)
  1. GOPRELTO [Suspect]
     Active Substance: COCAINE HYDROCHLORIDE
     Route: 045
     Dates: start: 2016, end: 2016

REACTIONS (2)
  - Drug abuse [Unknown]
  - Eosinophilic pneumonia acute [Recovered/Resolved]

NARRATIVE: CASE EVENT DATE: 2016
